FAERS Safety Report 7522945-6 (Version None)
Quarter: 2011Q2

REPORT INFORMATION
  Report Type: 
  Country: None (occurrence: None)
  Receive Date: 20110603
  Receipt Date: 20110526
  Transmission Date: 20111010
  Serious: Yes (Other)
  Sender: FDA-Public Use
  Company Number: US-JNJFOC-20110312203

PATIENT
  Sex: Male
  Weight: 99.79 kg

DRUGS (8)
  1. ZOLOFT [Concomitant]
     Indication: ANXIETY
     Route: 048
  2. FINASTERIDE [Concomitant]
     Indication: PROSTATIC DISORDER
     Route: 048
     Dates: start: 20110201
  3. CLARITIN [Concomitant]
     Route: 048
  4. STELARA [Suspect]
     Indication: PSORIASIS
     Route: 058
     Dates: start: 20110118
  5. ZOCOR [Concomitant]
     Indication: BLOOD CHOLESTEROL
     Route: 048
  6. UROXATRAL [Concomitant]
     Indication: PROSTATIC DISORDER
     Route: 048
     Dates: start: 20110201
  7. BIOTIN [Concomitant]
     Route: 048
  8. STELARA [Suspect]
     Route: 058
     Dates: start: 20110309

REACTIONS (1)
  - PROSTATE CANCER [None]
